FAERS Safety Report 9386489 (Version 2)
Quarter: 2013Q3

REPORT INFORMATION
  Report Type: Report from Study
  Country: BE (occurrence: BE)
  Receive Date: 20130708
  Receipt Date: 20130806
  Transmission Date: 20140515
  Serious: Yes (Hospitalization)
  Sender: FDA-Public Use
  Company Number: BE-BIOGENIDEC-2013BI059284

PATIENT
  Age: 43 Year
  Sex: Female
  Weight: 126 kg

DRUGS (4)
  1. BG00012 [Suspect]
     Indication: MULTIPLE SCLEROSIS
     Dates: start: 20130119
  2. PANTOMED [Concomitant]
  3. XANAX [Concomitant]
  4. DENOL [Concomitant]

REACTIONS (1)
  - Gastric bypass [Recovered/Resolved]
